FAERS Safety Report 9425480 (Version 9)
Quarter: 2014Q3

REPORT INFORMATION
  Report Type: Spontaneous
  Country: US (occurrence: US)
  Receive Date: 20130729
  Receipt Date: 20140912
  Transmission Date: 20150326
  Serious: Yes (Hospitalization, Disabling, Other)
  Sender: FDA-Public Use
  Company Number: US-009507513-1307USA014156

PATIENT
  Sex: Female
  Weight: 61.22 kg

DRUGS (4)
  1. FOSAMAX [Suspect]
     Active Substance: ALENDRONATE SODIUM
     Indication: OSTEOPOROSIS
     Dosage: 70 MG, QW
     Route: 048
     Dates: start: 200007, end: 200807
  2. FOSAMAX [Suspect]
     Active Substance: ALENDRONATE SODIUM
     Indication: OSTEOPENIA
  3. ALENDRONATE SODIUM. [Suspect]
     Active Substance: ALENDRONATE SODIUM
     Indication: OSTEOPOROSIS
  4. ALENDRONATE SODIUM. [Suspect]
     Active Substance: ALENDRONATE SODIUM
     Indication: OSTEOPENIA
     Dosage: 70 MG, QW
     Route: 048
     Dates: start: 200807, end: 201210

REACTIONS (29)
  - Blood cholesterol increased [Unknown]
  - Pneumonia [Unknown]
  - Depression [Unknown]
  - Endodontic procedure [Unknown]
  - Vertigo [Unknown]
  - Intramedullary rod insertion [Unknown]
  - Vitamin D deficiency [Unknown]
  - Lower limb fracture [Unknown]
  - Osteoarthritis [Unknown]
  - Biopsy lymph gland [Unknown]
  - Escherichia urinary tract infection [Unknown]
  - Femur fracture [Not Recovered/Not Resolved]
  - Calcium deficiency [Unknown]
  - Breast lump removal [Unknown]
  - Osteoarthritis [Unknown]
  - Intraductal proliferative breast lesion [Unknown]
  - Joint injury [Unknown]
  - Low turnover osteopathy [Not Recovered/Not Resolved]
  - Knee arthroplasty [Unknown]
  - Parkinson^s disease [Unknown]
  - Dental prosthesis placement [Unknown]
  - Intervertebral disc degeneration [Unknown]
  - Dental prosthesis user [Unknown]
  - Cancer surgery [Unknown]
  - Anxiety [Unknown]
  - Hypertension [Unknown]
  - Glaucoma [Unknown]
  - Adverse event [Unknown]
  - Breast mass [Unknown]

NARRATIVE: CASE EVENT DATE: 2000
